FAERS Safety Report 7526416-2 (Version None)
Quarter: 2011Q2

REPORT INFORMATION
  Report Type: 
  Country: None (occurrence: None)
  Receive Date: 20110606
  Receipt Date: 20110601
  Transmission Date: 20111010
  Serious: Yes (Disabling)
  Sender: FDA-Public Use
  Company Number: CA-PFIZER INC-2010070243

PATIENT
  Age: 70 Year
  Sex: Female
  Weight: 81.633 kg

DRUGS (9)
  1. PANTOLOC ^NYCOMED^ [Concomitant]
     Dosage: 40 MG, 1X/DAY IN THE MORNING
     Route: 048
  2. LIPITOR [Suspect]
     Dosage: 40 MG, 1X/DAY AT BEDTIME
     Route: 048
     Dates: start: 20090101, end: 20090201
  3. LIPITOR [Suspect]
     Dosage: 5 MG, 1X/DAY AT BEDTIME
     Route: 048
     Dates: start: 20090101, end: 20090301
  4. LIPITOR [Suspect]
     Dosage: 20 MG, 1X/DAY AT BEDTIME
     Route: 048
     Dates: start: 20080101, end: 20090101
  5. LOVAZA [Concomitant]
     Dosage: 1 TABLET, 2X/DAY
     Route: 048
     Dates: start: 20081125
  6. SITAGLIPTIN PHOSPHATE [Concomitant]
     Dosage: 100 MG, 1X/DAY
     Route: 048
  7. ASAPHEN [Concomitant]
     Dosage: 80 MG, 1X/DAY
     Route: 048
  8. SYNTHROID [Concomitant]
     Dosage: 0.05 MG, UNK
     Route: 048
  9. LIPITOR [Suspect]
     Indication: BLOOD CHOLESTEROL
     Dosage: 10 MG, 1X/DAY AT BEDTIME
     Route: 048
     Dates: start: 20060601, end: 20060101

REACTIONS (7)
  - PALPITATIONS [None]
  - HEADACHE [None]
  - THROAT IRRITATION [None]
  - NIGHTMARE [None]
  - DYSPEPSIA [None]
  - CONSTIPATION [None]
  - HYPERHIDROSIS [None]
